FAERS Safety Report 13105584 (Version 1)
Quarter: 2017Q1

REPORT INFORMATION
  Report Type: Not Available
  Country: BE (occurrence: BE)
  Receive Date: 20170111
  Receipt Date: 20170111
  Transmission Date: 20170428
  Serious: Yes (Other)
  Sender: FDA-Public Use
  Company Number: BE-IDTAUSTRALIA-2017-BE-000001

PATIENT
  Age: 53 Year
  Sex: Male

DRUGS (2)
  1. DEXAMETHASONE (NON-SPECIFIC) [Suspect]
     Active Substance: DEXAMETHASONE
     Dosage: 40 MG DAILY FOR FOUR CONSECUTIVE DAYS
     Route: 065
  2. THALIDOMIDE [Concomitant]
     Active Substance: THALIDOMIDE
     Dosage: 150 MG DAILY
     Route: 065

REACTIONS (2)
  - Psychotic disorder [Recovered/Resolved]
  - Catatonia [Recovered/Resolved]
